FAERS Safety Report 19020794 (Version 3)
Quarter: 2025Q1

REPORT INFORMATION
  Report Type: Report from Study
  Country: FR (occurrence: FR)
  Receive Date: 20210317
  Receipt Date: 20250317
  Transmission Date: 20250409
  Serious: No
  Sender: TAKEDA
  Company Number: FR-SHIRE-FR201850790

PATIENT
  Age: 61 Year
  Sex: Male

DRUGS (21)
  1. TEDUGLUTIDE [Suspect]
     Active Substance: TEDUGLUTIDE
     Indication: Short-bowel syndrome
     Dosage: 3.6 MILLIGRAM, QD
     Dates: start: 20170412, end: 20170906
  2. TEDUGLUTIDE [Suspect]
     Active Substance: TEDUGLUTIDE
     Dosage: 4 MILLIGRAM, QD
     Dates: start: 20170907
  3. TEDUGLUTIDE [Suspect]
     Active Substance: TEDUGLUTIDE
  4. TEDUGLUTIDE [Suspect]
     Active Substance: TEDUGLUTIDE
  5. VITAMIN B12 [Concomitant]
     Active Substance: CYANOCOBALAMIN
     Indication: Vitamin B12 deficiency
     Dosage: 1.00 INTERNATIONAL UNIT
  6. TAHOR [Concomitant]
     Active Substance: ATORVASTATIN CALCIUM
     Indication: Cardiac failure
     Dosage: 40 MILLIGRAM, QD
     Dates: start: 2014
  7. TAHOR [Concomitant]
     Active Substance: ATORVASTATIN CALCIUM
     Indication: Cardiovascular event prophylaxis
  8. BISOPROLOL FUMARATE [Concomitant]
     Active Substance: BISOPROLOL FUMARATE
     Indication: Cardiac failure
     Dosage: 5 MILLIGRAM, QD
     Dates: start: 2014
  9. INSPRA [Concomitant]
     Active Substance: EPLERENONE
     Indication: Dressler^s syndrome
     Dosage: 25 MILLIGRAM, QD
     Dates: start: 2014
  10. KARDEGIC [Concomitant]
     Active Substance: ASPIRIN DL-LYSINE
     Indication: Dressler^s syndrome
     Dosage: 75 MILLIGRAM, QD
     Dates: start: 2014
  11. IMODIUM [Concomitant]
     Active Substance: LOPERAMIDE HYDROCHLORIDE
     Indication: Diarrhoea
  12. EUPANTOL [Concomitant]
     Active Substance: PANTOPRAZOLE SODIUM
     Indication: Short-bowel syndrome
     Dosage: 40 MILLIGRAM, QD
     Dates: start: 2010
  13. SMECTA [Concomitant]
     Active Substance: MONTMORILLONITE
     Indication: Diarrhoea
  14. RAMIPRIL [Concomitant]
     Active Substance: RAMIPRIL
     Indication: Dressler^s syndrome
     Dosage: 5 MILLIGRAM, BID
     Dates: start: 2014, end: 20200819
  15. CHOLECALCIFEROL [Concomitant]
     Active Substance: CHOLECALCIFEROL
     Indication: Vitamin D deficiency
  16. SILODOSIN [Concomitant]
     Active Substance: SILODOSIN
     Indication: Dysuria
     Dosage: 4 MILLIGRAM, QD
     Dates: start: 20170314
  17. PYGEUM [Concomitant]
     Active Substance: PYGEUM
     Indication: Dysuria
     Dosage: 50 MILLIGRAM, BID
     Dates: start: 201702
  18. AMLODIPINE BESYLATE [Concomitant]
     Active Substance: AMLODIPINE BESYLATE
     Indication: Cardiac failure
     Dosage: 5 MILLIGRAM, QD
  19. SELENIUM [Concomitant]
     Active Substance: SELENIUM
     Indication: Cardiovascular event prophylaxis
     Dosage: 0.1 MILLIGRAM, QD
     Dates: start: 20170615
  20. INNOHEP [Concomitant]
     Active Substance: TINZAPARIN SODIUM
     Indication: Cardiomyopathy
     Dosage: UNK UNK, QD
     Dates: start: 201811
  21. CHOLECALCIFEROL [Concomitant]
     Active Substance: CHOLECALCIFEROL
     Indication: Vitamin D deficiency
     Dosage: UNK UNK, MONTHLY
     Dates: start: 20210212

REACTIONS (2)
  - Rectal polyp [Recovered/Resolved]
  - Large intestine polyp [Recovered/Resolved]

NARRATIVE: CASE EVENT DATE: 20180911
